FAERS Safety Report 10238393 (Version 1)
Quarter: 2014Q2

REPORT INFORMATION
  Report Type: Spontaneous
  Country: US (occurrence: US)
  Receive Date: 20140616
  Receipt Date: 20140616
  Transmission Date: 20141212
  Serious: No
  Sender: FDA-Public Use
  Company Number: US-009507513-1406USA004576

PATIENT
  Sex: Male

DRUGS (1)
  1. A + D ORIGINAL OINTMENT [Suspect]
     Indication: ERYTHEMA
     Dosage: UNK, UNKNOWN
     Route: 048

REACTIONS (1)
  - Condition aggravated [Unknown]
